FAERS Safety Report 4400857-4 (Version None)
Quarter: 2004Q3

REPORT INFORMATION
  Report Type: 
  Country: None (occurrence: None)
  Receive Date: 20040907
  Receipt Date: 20030708
  Transmission Date: 20050211
  Serious: No
  Sender: FDA-Public Use
  Company Number: US-BRISTOL-MYERS SQUIBB COMPANY-12320529

PATIENT
  Age: 67 Year
  Sex: Male
  Weight: 133 kg

DRUGS (8)
  1. WARFARIN SODIUM [Suspect]
  2. METFORMIN HCL [Suspect]
     Indication: DIABETES MELLITUS
     Dosage: DURATION OF THERAPY:  ^4-6 MONTHS^
     Route: 048
  3. REQUIP [Concomitant]
  4. FUROSEMIDE [Concomitant]
  5. LOTENSIN [Concomitant]
  6. LANOXIN [Concomitant]
  7. TOPROL-XL [Concomitant]
  8. AMANTADINE HCL [Concomitant]

REACTIONS (1)
  - FATIGUE [None]
